FAERS Safety Report 18504525 (Version 1)
Quarter: 2020Q4

REPORT INFORMATION
  Report Type: Spontaneous
  Country: HN (occurrence: HN)
  Receive Date: 20201114
  Receipt Date: 20201114
  Transmission Date: 20210114
  Serious: Yes (Death, Other)
  Sender: FDA-Public Use
  Company Number: NVSC2020HN305144

PATIENT
  Age: 82 Year
  Sex: Male

DRUGS (1)
  1. GLIVEC [Suspect]
     Active Substance: IMATINIB MESYLATE
     Indication: CHRONIC MYELOID LEUKAEMIA
     Dosage: 400 MG (1 X 400 MG)
     Route: 065

REACTIONS (3)
  - General physical health deterioration [Unknown]
  - Hip fracture [Unknown]
  - Death [Fatal]

NARRATIVE: CASE EVENT DATE: 20200924
